FAERS Safety Report 22005885 (Version 1)
Quarter: 2023Q1

REPORT INFORMATION
  Report Type: Spontaneous
  Country: AR (occurrence: AR)
  Receive Date: 20230217
  Receipt Date: 20230217
  Transmission Date: 20230417
  Serious: Yes (Hospitalization)
  Sender: FDA-Public Use
  Company Number: AR-002147023-NVSC2023AR033011

PATIENT
  Age: 74 Year
  Sex: Male

DRUGS (1)
  1. ANAFRANIL [Suspect]
     Active Substance: CLOMIPRAMINE HYDROCHLORIDE
     Indication: Depression
     Dosage: 75 MG, QD
     Route: 048

REACTIONS (7)
  - Road traffic accident [Unknown]
  - Fall [Unknown]
  - Head injury [Unknown]
  - Limb injury [Unknown]
  - Joint injury [Unknown]
  - Foot fracture [Unknown]
  - Arthralgia [Not Recovered/Not Resolved]

NARRATIVE: CASE EVENT DATE: 20230102
